FAERS Safety Report 24364165 (Version 1)
Quarter: 2024Q3

REPORT INFORMATION
  Report Type: Spontaneous
  Country: IT (occurrence: IT)
  Receive Date: 20240925
  Receipt Date: 20240925
  Transmission Date: 20241016
  Serious: Yes (Hospitalization, Other)
  Sender: BRISTOL MYERS SQUIBB
  Company Number: None

PATIENT
  Age: 81 Year
  Sex: Male

DRUGS (7)
  1. ELIQUIS [Suspect]
     Active Substance: APIXABAN
     Indication: Atrial fibrillation
     Dosage: ELIQUIS*60CPR RIV 5MG - 2 CP/DAY
     Route: 048
     Dates: start: 20240418, end: 20240424
  2. AUROZEB [Concomitant]
     Indication: Dyslipidaemia
     Dosage: AUROZEB*30CPR RIV 20MG+10MG - 1 CP/DAY AT 22:00
     Route: 048
  3. LASIX [Concomitant]
     Active Substance: FUROSEMIDE
     Indication: Hypertension
     Dosage: LASIX*30CPR 25MG - 1 CP/DAY AT 18:00
     Route: 048
  4. DAPAGLIFLOZIN [Concomitant]
     Active Substance: DAPAGLIFLOZIN
     Indication: Type 2 diabetes mellitus
     Dosage: FORXIGA*28CPR RIV 10MG - 1 CP/DAY AT 12:00
     Route: 048
  5. OMEPRAZOLE [Concomitant]
     Active Substance: OMEPRAZOLE
     Indication: Gastrooesophageal reflux prophylaxis
     Dosage: OMEPRAZEN*28CPS 20MG - 1 CP/DAY AT 08:00
     Route: 048
  6. OLMESARTAN MEDOXOMIL [Concomitant]
     Active Substance: OLMESARTAN MEDOXOMIL
     Indication: Hypertension
     Dosage: OLPRESS*28CPR RIV 40MG - 1 CP/DAY AT 08:00
     Route: 048
  7. ALFUZOSIN [Concomitant]
     Active Substance: ALFUZOSIN
     Indication: Benign prostatic hyperplasia
     Dosage: XATRAL*30CPR 10MG RP- 1 CP/DAY
     Route: 048

REACTIONS (5)
  - Fatigue [Recovered/Resolved]
  - Melaena [Recovered/Resolved]
  - Haematuria [Recovered/Resolved]
  - Hypotension [Recovered/Resolved]
  - Anaemia [Recovered/Resolved]

NARRATIVE: CASE EVENT DATE: 20240421
